FAERS Safety Report 11198418 (Version 1)
Quarter: 2015Q2

REPORT INFORMATION
  Report Type: Spontaneous
  Country: US (occurrence: None)
  Receive Date: 20150616
  Receipt Date: 20150616
  Transmission Date: 20150821
  Serious: Yes (Death)
  Sender: FDA-Public Use
  Company Number: INS201506-000232

PATIENT
  Age: 89 Year

DRUGS (1)
  1. SUBSYS [Suspect]
     Active Substance: FENTANYL
     Dosage: (100 MCG, 120 UNITS)

REACTIONS (1)
  - Death [None]
